FAERS Safety Report 5160279-8 (Version None)
Quarter: 2006Q4

REPORT INFORMATION
  Report Type: 
  Country: None (occurrence: None)
  Receive Date: 20061129
  Receipt Date: 20061012
  Transmission Date: 20070319
  Serious: Yes (Hospitalization, Other)
  Sender: FDA-Public Use
  Company Number: GB-GLAXOSMITHKLINE-B0442035A

PATIENT
  Age: 73 Year
  Sex: Female

DRUGS (6)
  1. AMOXICILLIN [Suspect]
     Indication: INFECTION
     Dosage: 50MG THREE TIMES PER DAY
     Route: 048
     Dates: start: 20060703, end: 20060710
  2. FLUCLOXACILLIN [Suspect]
     Indication: INFECTION
     Dosage: 500MG FOUR TIMES PER DAY
     Route: 048
     Dates: start: 20060703, end: 20060717
  3. ASPIRIN [Concomitant]
     Indication: ANTIPLATELET THERAPY
     Dosage: 75MG PER DAY
     Route: 048
     Dates: start: 20051101
  4. BENDROFLUAZIDE [Concomitant]
     Dosage: 2.5MG PER DAY
     Route: 048
     Dates: start: 20060801
  5. DOXAZOSIN MESYLATE [Concomitant]
     Indication: HYPERTENSION
     Dosage: 2MG PER DAY
     Route: 048
     Dates: start: 20060801
  6. OMEPRAZOLE [Concomitant]
     Dosage: 20MG PER DAY
     Route: 048
     Dates: start: 20050101

REACTIONS (4)
  - JAUNDICE [None]
  - LIVER FUNCTION TEST ABNORMAL [None]
  - MALAISE [None]
  - PRURITUS [None]
